FAERS Safety Report 7048650-0 (Version None)
Quarter: 2010Q4

REPORT INFORMATION
  Report Type: 
  Country: None (occurrence: None)
  Receive Date: 20101018
  Receipt Date: 20101006
  Transmission Date: 20110411
  Serious: Yes (Death, Hospitalization, Other)
  Sender: FDA-Public Use
  Company Number: JP-BAYER-201014736BYL

PATIENT
  Age: 78 Year
  Sex: Male
  Weight: 59 kg

DRUGS (9)
  1. NEXAVAR [Suspect]
     Indication: HEPATIC NEOPLASM MALIGNANT
     Dosage: TOTAL DAILY DOSE: 400 MG  UNIT DOSE: 200 MG
     Route: 048
     Dates: start: 20100810, end: 20100906
  2. NEXAVAR [Suspect]
     Dosage: TOTAL DAILY DOSE: 800 MG  UNIT DOSE: 200 MG
     Route: 048
     Dates: start: 20100907, end: 20100912
  3. WARFARIN SODIUM [Concomitant]
     Indication: PORTAL VEIN THROMBOSIS
     Dosage: UNIT DOSE: 1 MG
     Route: 048
     Dates: start: 20100831, end: 20100912
  4. AMINOLEBAN EN [Concomitant]
     Indication: HEPATIC CIRRHOSIS
     Dosage: UNIT DOSE: 50 G
     Route: 048
     Dates: start: 20081216, end: 20100912
  5. NORVASC [Concomitant]
     Indication: HYPERTENSION
     Dosage: UNIT DOSE: 5 MG
     Route: 048
     Dates: end: 20100912
  6. LIVACT [Concomitant]
     Indication: HEPATIC CIRRHOSIS
     Dosage: UNIT DOSE: 4.15 G
     Route: 048
     Dates: end: 20100912
  7. GASTER D [Concomitant]
     Indication: VARICES OESOPHAGEAL
     Dosage: UNIT DOSE: 20 MG
     Route: 048
     Dates: end: 20100912
  8. URSO 250 [Concomitant]
     Indication: HEPATITIS C
     Dosage: UNIT DOSE: 100 MG
     Route: 048
     Dates: end: 20100912
  9. UFT [Concomitant]
     Indication: HEPATIC NEOPLASM MALIGNANT
     Dosage: UNIT DOSE: 100 MG
     Route: 048
     Dates: start: 20100707, end: 20100809

REACTIONS (6)
  - GASTROINTESTINAL HAEMORRHAGE [None]
  - HEPATIC ENCEPHALOPATHY [None]
  - HYPERAMMONAEMIA [None]
  - HYPOGLYCAEMIA [None]
  - METABOLIC ACIDOSIS [None]
  - SOMNOLENCE [None]
